FAERS Safety Report 4477093-9 (Version None)
Quarter: 2004Q4

REPORT INFORMATION
  Report Type: 
  Country: None (occurrence: None)
  Receive Date: 20041018
  Receipt Date: 20041008
  Transmission Date: 20050328
  Serious: Yes (Hospitalization)
  Sender: FDA-Public Use
  Company Number: 200413777FR

PATIENT
  Age: 17 Year
  Sex: Female

DRUGS (4)
  1. CLAFORAN [Suspect]
     Indication: PYELONEPHRITIS
     Route: 042
     Dates: start: 20040729, end: 20040729
  2. VISCERALGINE FORTE TABLETS [Suspect]
     Indication: ABDOMINAL PAIN
     Route: 048
     Dates: start: 20040728, end: 20040728
  3. METEOSPASMYL [Concomitant]
     Indication: ABDOMINAL PAIN
     Route: 048
     Dates: start: 20040728, end: 20040728
  4. CIFLOX [Concomitant]
     Indication: PYELONEPHRITIS
     Dates: start: 20040101

REACTIONS (2)
  - ACUTE GENERALISED EXANTHEMATOUS PUSTULOSIS [None]
  - PYELONEPHRITIS [None]
